FAERS Safety Report 4424286-2 (Version None)
Quarter: 2004Q3

REPORT INFORMATION
  Report Type: 
  Country: None (occurrence: None)
  Receive Date: 20040810
  Receipt Date: 20040729
  Transmission Date: 20050211
  Serious: Yes (Hospitalization)
  Sender: FDA-Public Use
  Company Number: 2004226159DE

PATIENT
  Age: 44 Year
  Sex: Male

DRUGS (2)
  1. CABERGOLINE [Suspect]
     Indication: PARKINSON'S DISEASE
     Dosage: 3 MG/DAY; ORAL
     Route: 048
  2. PANTOZOL (PANTOPRAZOLE SODIUM) [Concomitant]

REACTIONS (2)
  - CONDITION AGGRAVATED [None]
  - GASTRIC ULCER HAEMORRHAGE [None]
